FAERS Safety Report 21313161 (Version 3)
Quarter: 2022Q4

REPORT INFORMATION
  Report Type: Report from Study
  Country: AU (occurrence: None)
  Receive Date: 20220909
  Receipt Date: 20221005
  Transmission Date: 20230112
  Serious: Yes (Hospitalization)
  Sender: FDA-Public Use
  Company Number: AU-ROCHE-3176317

PATIENT
  Age: 59 Year
  Sex: Female
  Weight: 63 kg

DRUGS (21)
  1. VEMURAFENIB [Suspect]
     Active Substance: VEMURAFENIB
     Indication: Cholangiocarcinoma
     Dosage: CYCLE 1, LAST DOSE 960 MG (ORAL), MOST LATEST DOSE OF VEMURAFENIB ON 23/AUG/2022.
     Route: 048
     Dates: start: 20220819
  2. COBIMETINIB [Suspect]
     Active Substance: COBIMETINIB
     Indication: Cholangiocarcinoma
     Dosage: CYCLE 1, LAST DOSE 60 MG,  MOST LATEST DOSE OF COBIMETINIB ON 23/AUG/2022
     Route: 048
     Dates: start: 20220819
  3. LOPERAMIDE [Concomitant]
     Active Substance: LOPERAMIDE
  4. ONDANSETRON [Concomitant]
     Active Substance: ONDANSETRON
  5. ENOXAPARIN [Concomitant]
     Active Substance: ENOXAPARIN
  6. SULFAMETHOXAZOLE\TRIMETHOPRIM [Concomitant]
     Active Substance: SULFAMETHOXAZOLE\TRIMETHOPRIM
  7. PANTOPRAZOLE [Concomitant]
     Active Substance: PANTOPRAZOLE
  8. BETAMETHASONE [Concomitant]
     Active Substance: BETAMETHASONE
  9. ACETAMINOPHEN [Concomitant]
     Active Substance: ACETAMINOPHEN
  10. LORATADINE [Concomitant]
     Active Substance: LORATADINE
  11. SODIUM BICARBONATE [Concomitant]
     Active Substance: SODIUM BICARBONATE
  12. UNSPECIFIED INGREDIENT [Concomitant]
     Active Substance: UNSPECIFIED INGREDIENT
  13. PREDNISOLONE [Concomitant]
     Active Substance: PREDNISOLONE
  14. MAGNESIUM [Concomitant]
     Active Substance: MAGNESIUM
  15. METRONIDAZOLE [Concomitant]
     Active Substance: METRONIDAZOLE
  16. FEXOFENADINE [Concomitant]
     Active Substance: FEXOFENADINE HYDROCHLORIDE
  17. OXYCODONE [Concomitant]
     Active Substance: OXYCODONE
  18. NOVORAPID [Concomitant]
     Active Substance: INSULIN ASPART
  19. FUROSEMIDE [Concomitant]
     Active Substance: FUROSEMIDE
  20. FAMOTIDINE [Concomitant]
     Active Substance: FAMOTIDINE
  21. ATOVAQUONE [Concomitant]
     Active Substance: ATOVAQUONE

REACTIONS (4)
  - Colitis [Recovered/Resolved with Sequelae]
  - Off label use [Unknown]
  - Hypersensitivity [Recovered/Resolved]
  - Hyperglycaemia [Recovered/Resolved with Sequelae]

NARRATIVE: CASE EVENT DATE: 20220824
